FAERS Safety Report 25422751 (Version 2)
Quarter: 2025Q2

REPORT INFORMATION
  Report Type: Spontaneous
  Country: JP (occurrence: JP)
  Receive Date: 20250611
  Receipt Date: 20250619
  Transmission Date: 20250716
  Serious: Yes (Hospitalization)
  Sender: BRAINTREE
  Company Number: JP-BRAINTREE LABORATORIES, INC.-2025BTE00381

PATIENT
  Age: 69 Year
  Sex: Female

DRUGS (2)
  1. MAGNESIUM SULFATE\POTASSIUM SULFATE\SODIUM SULFATE [Suspect]
     Active Substance: MAGNESIUM SULFATE\POTASSIUM SULFATE\SODIUM SULFATE
     Indication: Colonoscopy
     Dosage: 480 ML, 1X/DAY
     Route: 048
     Dates: start: 20250523, end: 20250523
  2. SODIUM PICOSULFATE [Concomitant]
     Active Substance: SODIUM PICOSULFATE
     Indication: Colonoscopy
     Dosage: 10 ML/12 HOURS
     Route: 048
     Dates: start: 20250522, end: 20250522

REACTIONS (4)
  - Vomiting [Recovered/Resolved]
  - Hyponatraemia [Recovered/Resolved]
  - Nausea [Recovered/Resolved]
  - Headache [Recovered/Resolved]

NARRATIVE: CASE EVENT DATE: 20250523
